FAERS Safety Report 18590389 (Version 1)
Quarter: 2020Q4

REPORT INFORMATION
  Report Type: Spontaneous
  Country: US (occurrence: US)
  Receive Date: 20201027
  Receipt Date: 20201027
  Transmission Date: 20210114
  Serious: Yes (Death)
  Sender: FDA-Public Use
  Company Number: None

PATIENT
  Age: 4 Decade
  Sex: Female

DRUGS (2)
  1. HYDROXYCHLOROQUINE [Suspect]
     Active Substance: HYDROXYCHLOROQUINE
     Indication: COVID-19
     Dates: start: 2020
  2. PERAMIVIR [Suspect]
     Active Substance: PERAMIVIR
     Indication: COVID-19
     Dates: start: 2020

REACTIONS (6)
  - Encephalitis [None]
  - Myelitis [None]
  - Brain herniation [None]
  - Cerebral ischaemia [None]
  - Off label use [None]
  - Brain oedema [None]
